FAERS Safety Report 4811063-3 (Version None)
Quarter: 2005Q4

REPORT INFORMATION
  Report Type: 
  Country: None (occurrence: None)
  Receive Date: 20051025
  Receipt Date: 20051014
  Transmission Date: 20060501
  Serious: Yes (Other)
  Sender: FDA-Public Use
  Company Number: S05-USA-04683-01

PATIENT
  Age: 28 Year
  Sex: Male

DRUGS (3)
  1. LEXAPRO [Suspect]
     Indication: DEPRESSION
     Dates: start: 20051006, end: 20051014
  2. PROTONIX [Concomitant]
  3. ZOFRAN [Concomitant]

REACTIONS (8)
  - CONFUSIONAL STATE [None]
  - CONVULSION [None]
  - EUPHORIC MOOD [None]
  - HEADACHE [None]
  - LOSS OF CONSCIOUSNESS [None]
  - REFUSAL OF TREATMENT BY PATIENT [None]
  - TINNITUS [None]
  - TONIC CLONIC MOVEMENTS [None]
